FAERS Safety Report 25053553 (Version 2)
Quarter: 2025Q1

REPORT INFORMATION
  Report Type: Spontaneous
  Country: US (occurrence: US)
  Receive Date: 20250307
  Receipt Date: 20250325
  Transmission Date: 20250409
  Serious: No
  Sender: SANOFI AVENTIS
  Company Number: US-SA-2025SA065942

PATIENT
  Age: 87 Year
  Sex: Female

DRUGS (13)
  1. KEVZARA [Suspect]
     Active Substance: SARILUMAB
     Indication: Rheumatoid arthritis
     Dosage: 200 MG, QOW
     Route: 058
  2. SELENIUM [Concomitant]
     Active Substance: SELENIUM
  3. POTASSIUM [Concomitant]
     Active Substance: POTASSIUM
  4. CALCIUM [Concomitant]
     Active Substance: CALCIUM
  5. MAGNESIUM [Concomitant]
     Active Substance: MAGNESIUM
  6. ARGININE [Concomitant]
     Active Substance: ARGININE
  7. PRASTERONE [Concomitant]
     Active Substance: PRASTERONE
  8. ZINC [Concomitant]
     Active Substance: ZINC
  9. BIOTIN [Concomitant]
     Active Substance: BIOTIN
  10. VITAMIN D3 [Concomitant]
     Active Substance: CHOLECALCIFEROL
  11. TRIAMCINOLONE ACETONIDE [Concomitant]
     Active Substance: TRIAMCINOLONE ACETONIDE
  12. ESTRADIOL [Concomitant]
     Active Substance: ESTRADIOL
  13. XIIDRA [Concomitant]
     Active Substance: LIFITEGRAST

REACTIONS (13)
  - Productive cough [Not Recovered/Not Resolved]
  - Illness [Unknown]
  - Back pain [Unknown]
  - Sputum discoloured [Not Recovered/Not Resolved]
  - Oropharyngeal pain [Not Recovered/Not Resolved]
  - Head discomfort [Not Recovered/Not Resolved]
  - Respiratory tract congestion [Not Recovered/Not Resolved]
  - Chest discomfort [Not Recovered/Not Resolved]
  - Ear discomfort [Not Recovered/Not Resolved]
  - Nausea [Not Recovered/Not Resolved]
  - Fatigue [Not Recovered/Not Resolved]
  - Nasopharyngitis [Not Recovered/Not Resolved]
  - Influenza [Not Recovered/Not Resolved]

NARRATIVE: CASE EVENT DATE: 20250101
